FAERS Safety Report 21710192 (Version 2)
Quarter: 2022Q4

REPORT INFORMATION
  Report Type: Report from Study
  Country: EG (occurrence: EG)
  Receive Date: 20221211
  Receipt Date: 20221219
  Transmission Date: 20230112
  Serious: Yes (Other)
  Sender: FDA-Public Use
  Company Number: EG-002147023-NVSC2022EG284001

PATIENT
  Age: 62 Year
  Sex: Female

DRUGS (6)
  1. KISQALI [Suspect]
     Active Substance: RIBOCICLIB
     Indication: Breast cancer metastatic
     Dosage: 1 DOSAGE FORM, QD (FROM AUG OR SEP 2022 TO OCT 2022) (ONE TABLET DAILY FOR 3 WEEKS AND 1 WEEK OFF, A
     Route: 048
     Dates: end: 202210
  2. OCTATRON [Concomitant]
     Indication: Hypovitaminosis
     Dosage: UNK UNK, QD (ONCE PER DAY) (TWO YEARS AGO AND ONGOING)
     Route: 065
  3. BONE CARE [Concomitant]
     Active Substance: ATRACTYLODES LANCEA ROOT
     Indication: Vitamin D deficiency
     Dosage: UNK UNK, QD (ONCE PER DAY) (TWO YEARS AGO AND ONGOING)
     Route: 065
  4. CALCIUM\VITAMIN D [Concomitant]
     Active Substance: CALCIUM\VITAMIN D
     Indication: Calcium deficiency
     Dosage: UNK UNK, QD (ONCE PER DAY) (TWO YEARS AGO AND ONGOING)
     Route: 065
  5. A VITON [Concomitant]
     Indication: Ill-defined disorder
     Dosage: UNK UNK, QD (ONCE PER DAY) (TWO YEARS AGO AND ONGOING)
     Route: 065
  6. BENFOTIAMINE\CYANOCOBALAMIN\PYRIDOXINE HYDROCHLORIDE [Concomitant]
     Active Substance: BENFOTIAMINE\CYANOCOBALAMIN\PYRIDOXINE HYDROCHLORIDE
     Indication: Nerve injury
     Dosage: UNK UNK, QD (ONCE PER DAY) (TWO YEARS AGO AND ONGOING)
     Route: 065

REACTIONS (7)
  - Subcutaneous abscess [Recovering/Resolving]
  - General physical health deterioration [Recovering/Resolving]
  - Dyspnoea [Recovering/Resolving]
  - Hypotension [Recovering/Resolving]
  - Haemoglobin decreased [Unknown]
  - Platelet count decreased [Unknown]
  - White blood cell count decreased [Unknown]

NARRATIVE: CASE EVENT DATE: 20221001
